FAERS Safety Report 15830910 (Version 3)
Quarter: 2020Q1

REPORT INFORMATION
  Report Type: Report from Study
  Country: DE (occurrence: DE)
  Receive Date: 20190116
  Receipt Date: 20200229
  Transmission Date: 20200409
  Serious: Yes (Hospitalization)
  Sender: FDA-Public Use
  Company Number: DE-ROCHE-2243119

PATIENT
  Age: 56 Year
  Sex: Female
  Weight: 93 kg

DRUGS (17)
  1. OCRELIZUMAB. [Suspect]
     Active Substance: OCRELIZUMAB
     Indication: MULTIPLE SCLEROSIS
     Dosage: ON 20/SEP/2018, MOST RECENT DOSE
     Route: 042
     Dates: start: 20180830
  2. VITAMIN D [VITAMIN D NOS] [Concomitant]
     Active Substance: VITAMIN D NOS
     Route: 048
     Dates: start: 2010
  3. PANTOZOLE [Concomitant]
     Active Substance: PANTOPRAZOLE SODIUM
     Route: 048
     Dates: start: 20190806, end: 20190815
  4. INTERFERON BETA 1B [Concomitant]
     Active Substance: INTERFERON BETA-1B
     Route: 065
     Dates: start: 200606, end: 201002
  5. L-THYROX [Concomitant]
     Active Substance: LEVOTHYROXINE SODIUM
     Indication: HYPOTHYROIDISM
     Route: 048
     Dates: start: 2000
  6. NATALIZUMAB [Concomitant]
     Active Substance: NATALIZUMAB
     Route: 065
     Dates: start: 20111111, end: 20140307
  7. PANTOZOLE [Concomitant]
     Active Substance: PANTOPRAZOLE SODIUM
     Route: 048
     Dates: start: 20180830
  8. SINGULAIR [Concomitant]
     Active Substance: MONTELUKAST SODIUM
     Indication: ASTHMA
     Route: 048
     Dates: start: 201807, end: 201809
  9. PARACETAMOL [Concomitant]
     Active Substance: ACETAMINOPHEN
     Indication: PREMEDICATION
     Route: 048
     Dates: start: 20180830
  10. HISTAKUT [Concomitant]
     Indication: PREMEDICATION
     Route: 042
     Dates: start: 20180830
  11. RESTEX [Concomitant]
     Active Substance: BENSERAZIDE\LEVODOPA
     Indication: RESTLESS LEGS SYNDROME
     Route: 048
     Dates: start: 2016
  12. PANTOZOLE [Concomitant]
     Active Substance: PANTOPRAZOLE SODIUM
     Route: 048
     Dates: start: 20190827, end: 20190905
  13. RESTEX [Concomitant]
     Active Substance: BENSERAZIDE\LEVODOPA
     Route: 048
     Dates: start: 2016
  14. PREDNISOLUT [PREDNISOLONE HEMISUCCINATE] [Concomitant]
     Indication: PREMEDICATION
     Dosage: STOMACH PROTECTION, PRE-MEDICATION PRIOR TO EACH OCREVUS ADMINISTRATION.
     Route: 042
     Dates: start: 20180830
  15. PANTOZOLE [Concomitant]
     Active Substance: PANTOPRAZOLE SODIUM
     Indication: PREMEDICATION
     Route: 048
     Dates: start: 20180830
  16. CEFUROXIME. [Concomitant]
     Active Substance: CEFUROXIME
     Indication: SINUSITIS
     Route: 048
     Dates: start: 20190603, end: 20190609
  17. INTERFERON BETA 1B [Concomitant]
     Active Substance: INTERFERON BETA-1B
     Route: 065
     Dates: start: 201405, end: 201808

REACTIONS (1)
  - Cholecystitis [Recovered/Resolved]

NARRATIVE: CASE EVENT DATE: 20181115
